APPROVED DRUG PRODUCT: AMPICILLIN TRIHYDRATE
Active Ingredient: AMPICILLIN/AMPICILLIN TRIHYDRATE
Strength: EQ 125MG BASE/5ML
Dosage Form/Route: FOR SUSPENSION;ORAL
Application: A062982 | Product #001
Applicant: PH HEALTH LTD
Approved: Feb 10, 1989 | RLD: No | RS: No | Type: DISCN